FAERS Safety Report 26081697 (Version 2)
Quarter: 2025Q4

REPORT INFORMATION
  Report Type: Report from Study
  Country: GB (occurrence: GB)
  Receive Date: 20251124
  Receipt Date: 20251208
  Transmission Date: 20260117
  Serious: Yes (Other)
  Sender: AMGEN
  Company Number: GB-AMGEN-GBRSL2025231444

PATIENT
  Age: 32 Year
  Sex: Male

DRUGS (1)
  1. ADALIMUMAB [Suspect]
     Active Substance: ADALIMUMAB
     Indication: Colitis ulcerative
     Dosage: 40 MILLIGRAM, QWK
     Route: 065

REACTIONS (3)
  - Venous injury [Unknown]
  - Injection site haemorrhage [Unknown]
  - Product preparation error [Unknown]

NARRATIVE: CASE EVENT DATE: 20251101
